FAERS Safety Report 7380942-8 (Version None)
Quarter: 2011Q1

REPORT INFORMATION
  Report Type: 
  Country: None (occurrence: None)
  Receive Date: 20110329
  Receipt Date: 20110325
  Transmission Date: 20110831
  Serious: Yes (Death, Life-Threatening, Hospitalization, Other)
  Sender: FDA-Public Use
  Company Number: PHHO2011FR01386

PATIENT
  Sex: Male
  Weight: 68 kg

DRUGS (33)
  1. SODIUM BICARBONATE [Concomitant]
  2. BACTRIM [Suspect]
     Dosage: 400 MG, PER DAY
     Route: 048
     Dates: start: 20110124, end: 20110201
  3. ESOMEPRAZOLE MAGNESIUM [Suspect]
     Dosage: 40 MG, PER DAY
     Route: 048
     Dates: start: 20110116, end: 20110201
  4. ALFUZOSIN [Concomitant]
  5. CELLCEPT [Suspect]
     Dosage: 1 G, PER DAY
     Route: 048
     Dates: start: 20110301, end: 20110308
  6. ECONAZOLE NITRATE [Concomitant]
  7. POTASSIUM [Concomitant]
  8. AMOXICILLIN [Concomitant]
  9. NEORAL [Suspect]
     Dosage: 100 MG, QD
     Route: 048
     Dates: start: 20110227, end: 20110316
  10. CALCIDIA [Concomitant]
  11. AMLOR [Concomitant]
  12. NEORAL [Suspect]
     Dosage: UNK
  13. CELLCEPT [Suspect]
     Indication: RENAL TRANSPLANT
     Dosage: 2 G, PER DAY
     Route: 048
     Dates: start: 20110115, end: 20110209
  14. ZANTAC [Suspect]
     Dosage: 150 MG, PER DAY
     Route: 048
     Dates: start: 20110202
  15. ESOMEPRAZOLE [Concomitant]
  16. NEORAL [Suspect]
     Indication: RENAL TRANSPLANT
     Dosage: 400 MG, PER DAY
     Route: 048
     Dates: start: 20110117, end: 20110201
  17. SIMULECT [Concomitant]
     Indication: RENAL TRANSPLANT
     Dosage: 500 MG/ DAY
     Dates: start: 20110115, end: 20110115
  18. IMODIUM [Concomitant]
  19. ALUMINUM HYDROXIDE AND MAGNESIUM TRISILICATE [Concomitant]
  20. PANTOPRAZOLE [Concomitant]
  21. CERTICAN [Suspect]
     Indication: RENAL TRANSPLANT
     Dosage: 3 MG, PER DAY
     Route: 048
     Dates: start: 20110202, end: 20110209
  22. CORTANCYL [Suspect]
     Indication: RENAL TRANSPLANT
     Dosage: 40 MG, PER DAY
     Route: 048
     Dates: start: 20110116
  23. ROVALCYTE [Suspect]
     Dosage: 250 MG, 9QD
     Route: 048
     Dates: start: 20110129, end: 20110201
  24. SOLU-MEDROL [Concomitant]
     Indication: RENAL TRANSPLANT
     Dosage: 20 MG/ DAY
     Dates: start: 20110115, end: 20110115
  25. LASIX [Concomitant]
  26. EPREX [Concomitant]
  27. NORSET [Concomitant]
  28. ASPIRIN [Concomitant]
  29. NEORAL [Suspect]
     Dosage: 400 MG, PER DAY
     Route: 048
     Dates: start: 20110210
  30. ADANCOR [Concomitant]
  31. NITRODERM [Concomitant]
  32. INSULATARD [Concomitant]
  33. COTRIM [Concomitant]

REACTIONS (20)
  - RENAL VESSEL DISORDER [None]
  - ASTHENIA [None]
  - WOUND COMPLICATION [None]
  - ESCHERICHIA SEPSIS [None]
  - WOUND DEHISCENCE [None]
  - DIARRHOEA [None]
  - ANASTOMOTIC HAEMORRHAGE [None]
  - CYTOMEGALOVIRUS INFECTION [None]
  - LEUKOPENIA [None]
  - POST PROCEDURAL HAEMORRHAGE [None]
  - COMPLICATIONS OF TRANSPLANTED KIDNEY [None]
  - KLEBSIELLA INFECTION [None]
  - MALNUTRITION [None]
  - ANAEMIA [None]
  - PNEUMONIA ESCHERICHIA [None]
  - THROMBOCYTOPENIA [None]
  - RENAL TUBULAR NECROSIS [None]
  - RENAL IMPAIRMENT [None]
  - SURGERY [None]
  - BRONCHIAL OBSTRUCTION [None]
